FAERS Safety Report 14545451 (Version 3)
Quarter: 2018Q1

REPORT INFORMATION
  Report Type: Spontaneous
  Country: NZ (occurrence: NZ)
  Receive Date: 20180219
  Receipt Date: 20180328
  Transmission Date: 20180509
  Serious: Yes (Other)
  Sender: FDA-Public Use
  Company Number: PHHY2018NZ024493

PATIENT
  Age: 77 Year
  Sex: Male

DRUGS (7)
  1. MONTELUKAST SODIUM. [Suspect]
     Active Substance: MONTELUKAST SODIUM
     Indication: SYSTEMIC MASTOCYTOSIS
     Dosage: 10 MG, QD
     Route: 065
     Dates: start: 201710
  2. DOXAZOCIN [Suspect]
     Active Substance: DOXAZOSIN MESYLATE
     Indication: SYSTEMIC MASTOCYTOSIS
     Dosage: 4 MG, UNK
     Route: 065
     Dates: start: 201710
  3. RANITIDINE. [Suspect]
     Active Substance: RANITIDINE
     Indication: SYSTEMIC MASTOCYTOSIS
     Dosage: 150 MG, BID
     Route: 065
     Dates: start: 201710
  4. CETIRIZINE [Suspect]
     Active Substance: CETIRIZINE HYDROCHLORIDE
     Indication: SYSTEMIC MASTOCYTOSIS
     Dosage: 10 MG, BID
     Route: 065
     Dates: start: 201710
  5. PROMETHAZINE [Suspect]
     Active Substance: PROMETHAZINE\PROMETHAZINE HYDROCHLORIDE
     Indication: SYSTEMIC MASTOCYTOSIS
     Dosage: 25 MG, UNK
     Route: 065
     Dates: start: 201710
  6. PAMIDRONATE [Suspect]
     Active Substance: PAMIDRONATE DISODIUM
     Indication: SYSTEMIC MASTOCYTOSIS
     Dosage: UNK
     Route: 065
     Dates: start: 201710
  7. PREDNISONE. [Suspect]
     Active Substance: PREDNISONE
     Indication: SYSTEMIC MASTOCYTOSIS
     Dosage: 20 MG, QD
     Route: 065
     Dates: start: 201710

REACTIONS (8)
  - Swelling [Unknown]
  - Cardiovascular disorder [Unknown]
  - Abdominal hernia [Unknown]
  - Bundle branch block left [Unknown]
  - Contusion [Unknown]
  - Urticaria [Recovering/Resolving]
  - Systemic mastocytosis [Unknown]
  - Sinus bradycardia [Unknown]

NARRATIVE: CASE EVENT DATE: 20180101
